FAERS Safety Report 17453978 (Version 1)
Quarter: 2020Q1

REPORT INFORMATION
  Report Type: Spontaneous
  Country: US (occurrence: US)
  Receive Date: 20200220
  Receipt Date: 20200220
  Transmission Date: 20200409
  Serious: Yes (Hospitalization)
  Sender: FDA-Public Use
  Company Number: US-PFIZER INC-2020075935

PATIENT
  Age: 33 Year
  Sex: Female

DRUGS (1)
  1. IBRANCE [Suspect]
     Active Substance: PALBOCICLIB
     Indication: BREAST CANCER STAGE IV
     Dosage: 125 MG, CYCLIC (DAILY ON DAYS 1-21 OF A 28 DAY CYCLE (3 WEEKS ON, 1 WEEK OFF)
     Route: 048
     Dates: start: 202001

REACTIONS (7)
  - Pelvic pain [Unknown]
  - Diarrhoea [Recovered/Resolved]
  - Decreased appetite [Unknown]
  - Weight decreased [Unknown]
  - Wound haemorrhage [Recovered/Resolved]
  - White blood cell count decreased [Unknown]
  - Anorectal discomfort [Recovered/Resolved]

NARRATIVE: CASE EVENT DATE: 2020
